FAERS Safety Report 11734505 (Version 2)
Quarter: 2016Q1

REPORT INFORMATION
  Report Type: Spontaneous
  Country: US (occurrence: US)
  Receive Date: 20151113
  Receipt Date: 20160112
  Transmission Date: 20160525
  Serious: Yes (Other)
  Sender: FDA-Public Use
  Company Number: US-SA-2015SA180036

PATIENT
  Sex: Male

DRUGS (1)
  1. THYMOGLOBULIN [Suspect]
     Active Substance: LAPINE T-LYMPHOCYTE IMMUNE GLOBULIN
     Indication: TRANSPLANT
     Dosage: FREQUNECY-4 DOSES
     Route: 065

REACTIONS (1)
  - Renal disorder [Unknown]
